FAERS Safety Report 5265835-4 (Version None)
Quarter: 2007Q1

REPORT INFORMATION
  Report Type: 
  Country: None (occurrence: None)
  Receive Date: 20070312
  Receipt Date: 20070312
  Transmission Date: 20070707
  Serious: Yes (Death)
  Sender: FDA-Public Use
  Company Number: None

PATIENT
  Age: 77 Year
  Sex: Male
  Weight: 56.246 kg

DRUGS (1)
  1. PROCRIT [Suspect]
     Indication: NASAL CAVITY CANCER
     Dosage: INJECTION
     Dates: start: 20060722, end: 20060912

REACTIONS (4)
  - ABASIA [None]
  - FAECAL INCONTINENCE [None]
  - THERMAL BURN [None]
  - URINARY INCONTINENCE [None]
